FAERS Safety Report 20819903 (Version 8)
Quarter: 2023Q2

REPORT INFORMATION
  Report Type: Spontaneous
  Country: US (occurrence: US)
  Receive Date: 20220512
  Receipt Date: 20230601
  Transmission Date: 20230722
  Serious: Yes (Other)
  Sender: FDA-Public Use
  Company Number: US-PFIZER INC-202200176089

PATIENT
  Age: 73 Year
  Sex: Female

DRUGS (1)
  1. XELJANZ XR [Suspect]
     Active Substance: TOFACITINIB CITRATE
     Dosage: 11 MG

REACTIONS (14)
  - Cerebrovascular accident [Unknown]
  - Drug dependence [Unknown]
  - Sensitivity to weather change [Unknown]
  - Arthritis [Unknown]
  - Musculoskeletal disorder [Unknown]
  - Eye disorder [Unknown]
  - Paraesthesia [Unknown]
  - Frustration tolerance decreased [Unknown]
  - Nervousness [Unknown]
  - Depressed mood [Unknown]
  - Impaired driving ability [Unknown]
  - Limb discomfort [Unknown]
  - Product dose omission issue [Unknown]
  - Arthropathy [Unknown]
